FAERS Safety Report 9648297 (Version 1)
Quarter: 2013Q4

REPORT INFORMATION
  Report Type: Spontaneous
  Country: US (occurrence: US)
  Receive Date: 20131028
  Receipt Date: 20131028
  Transmission Date: 20140711
  Serious: No
  Sender: FDA-Public Use
  Company Number: US-BAYER-2013-130391

PATIENT
  Sex: Female

DRUGS (2)
  1. MIDOL EXTENDED RELIEF CAPLET [Suspect]
     Dosage: 2 DF, UNK
  2. MIDOL EXTENDED RELIEF CAPLET [Suspect]
     Dosage: 3 DF, UNK

REACTIONS (1)
  - Extra dose administered [None]
